FAERS Safety Report 24695048 (Version 1)
Quarter: 2024Q4

REPORT INFORMATION
  Report Type: Spontaneous
  Country: US (occurrence: None)
  Receive Date: 20241204
  Receipt Date: 20241204
  Transmission Date: 20250115
  Serious: Yes (Death)
  Sender: Public
  Company Number: None

PATIENT
  Age: 67 Year
  Sex: Female
  Weight: 68.7 kg

DRUGS (1)
  1. CISPLATIN [Suspect]
     Active Substance: CISPLATIN
     Dates: end: 20241105

REACTIONS (6)
  - Electrolyte imbalance [None]
  - Gastrostomy tube site complication [None]
  - Hypomagnesaemia [None]
  - Anaemia [None]
  - Skin laceration [None]
  - Device leakage [None]

NARRATIVE: CASE EVENT DATE: 20241115
